FAERS Safety Report 6980152-X (Version None)
Quarter: 2010Q3

REPORT INFORMATION
  Report Type: 
  Country: None (occurrence: None)
  Receive Date: 20100914
  Receipt Date: 20100903
  Transmission Date: 20110219
  Serious: Yes (Other)
  Sender: FDA-Public Use
  Company Number: US-MYLANLABS-2010S1016344

PATIENT
  Age: 20 Year
  Sex: Male

DRUGS (6)
  1. AMNESTEEM [Suspect]
     Indication: ACNE
     Route: 048
     Dates: start: 20100401, end: 20100903
  2. AMNESTEEM [Suspect]
     Route: 048
     Dates: start: 20100401, end: 20100903
  3. CLARAVIS [Suspect]
     Indication: ACNE
     Route: 048
     Dates: start: 20100401, end: 20100903
  4. CLARAVIS [Suspect]
     Route: 048
     Dates: start: 20100401, end: 20100903
  5. CONCERTA [Concomitant]
  6. VITAMINS [Concomitant]

REACTIONS (2)
  - BLOOD TRIGLYCERIDES INCREASED [None]
  - SUICIDAL IDEATION [None]
